FAERS Safety Report 20724875 (Version 1)
Quarter: 2022Q2

REPORT INFORMATION
  Report Type: Report from Study
  Country: CO (occurrence: CO)
  Receive Date: 20220419
  Receipt Date: 20220419
  Transmission Date: 20220721
  Serious: Yes (Other)
  Sender: FDA-Public Use
  Company Number: CO-NOVARTISPH-NVSC2022CO086415

PATIENT
  Age: 82 Year
  Sex: Male
  Weight: 57.3 kg

DRUGS (2)
  1. METOPROLOL [Suspect]
     Active Substance: METOPROLOL
     Indication: Cardiac disorder
     Dosage: 25 MG, QD (STARTED 30 YEARS AGO)
     Route: 048
  2. CARVEDILOL [Suspect]
     Active Substance: CARVEDILOL
     Indication: Cardiac disorder
     Dosage: 25 MG, QD (STARTED 30 YEARS AGO)
     Route: 048

REACTIONS (4)
  - Aplastic anaemia [Unknown]
  - Hypothyroidism [Unknown]
  - Atrioventricular block [Unknown]
  - Product prescribing error [Unknown]

NARRATIVE: CASE EVENT DATE: 20210401
